FAERS Safety Report 4625996-4 (Version None)
Quarter: 2005Q1

REPORT INFORMATION
  Report Type: 
  Country: None (occurrence: None)
  Receive Date: 20050330
  Receipt Date: 20050314
  Transmission Date: 20050727
  Serious: Yes (Hospitalization, Other)
  Sender: FDA-Public Use
  Company Number: US_0503114238

PATIENT
  Age: 45 Year
  Sex: Female
  Weight: 119 kg

DRUGS (3)
  1. OLANZAPINE [Suspect]
     Indication: SCHIZOPHRENIA
     Dosage: 300 MG EVERY OTHER WEEK
     Route: 050
     Dates: start: 20050127, end: 20050313
  2. ADVAIR DISKUS 100/50 [Concomitant]
  3. DIAZEPAM [Concomitant]

REACTIONS (4)
  - DEPRESSED LEVEL OF CONSCIOUSNESS [None]
  - OXYGEN SATURATION DECREASED [None]
  - RESPIRATORY ACIDOSIS [None]
  - SKIN DISCOLOURATION [None]
